FAERS Safety Report 17492303 (Version 1)
Quarter: 2020Q1

REPORT INFORMATION
  Report Type: Spontaneous
  Country: CA (occurrence: CA)
  Receive Date: 20200304
  Receipt Date: 20200304
  Transmission Date: 20200409
  Serious: Yes (Life-Threatening)
  Sender: FDA-Public Use
  Company Number: CA-TEVA-2020-CA-1192064

PATIENT
  Age: 49 Year
  Sex: Male
  Weight: 72 kg

DRUGS (6)
  1. CYCLOBENZAPRINE. [Concomitant]
     Active Substance: CYCLOBENZAPRINE
  2. ZOPICLONE [Concomitant]
     Active Substance: ZOPICLONE
  3. TRAZODONE [Suspect]
     Active Substance: TRAZODONE HYDROCHLORIDE
     Indication: INSOMNIA
     Dosage: 50 MILLIGRAM DAILY;
     Route: 048
  4. GRAVOL [Concomitant]
     Active Substance: DIMENHYDRINATE
  5. AMLODIPINE [Concomitant]
     Active Substance: AMLODIPINE BESYLATE
  6. TYLENOL [Concomitant]
     Active Substance: ACETAMINOPHEN

REACTIONS (9)
  - Pain in extremity [Recovered/Resolved]
  - Salivary hypersecretion [Recovered/Resolved]
  - Gastrooesophageal reflux disease [Recovered/Resolved]
  - Hypoaesthesia [Recovered/Resolved]
  - Sleep apnoea syndrome [Recovered/Resolved]
  - Choking [Recovered/Resolved]
  - Myalgia [Recovered/Resolved]
  - Panic attack [Recovered/Resolved]
  - Snoring [Recovered/Resolved]
